FAERS Safety Report 5144346-0 (Version None)
Quarter: 2006Q4

REPORT INFORMATION
  Report Type: 
  Country: None (occurrence: None)
  Receive Date: 20061030
  Receipt Date: 20061011
  Transmission Date: 20070319
  Serious: Yes (Hospitalization, Other)
  Sender: FDA-Public Use
  Company Number: US200610000659

PATIENT
  Age: 57 Year
  Sex: Female

DRUGS (3)
  1. CYMBALTA [Suspect]
     Indication: NERVOUSNESS
     Dosage: 60 MG
     Dates: start: 20060101, end: 20060927
  2. BACTRUM (SULFAMETHOXAZOLE, TRIMETHOPRIM) [Concomitant]
  3. ZITHROMAX [Concomitant]

REACTIONS (9)
  - AGGRESSION [None]
  - APHONIA [None]
  - BRONCHITIS [None]
  - CYSTITIS [None]
  - DIARRHOEA [None]
  - HALLUCINATION [None]
  - HYPERSENSITIVITY [None]
  - INSOMNIA [None]
  - PSYCHOTIC DISORDER [None]
